FAERS Safety Report 9177563 (Version 1)
Quarter: 2013Q1

REPORT INFORMATION
  Report Type: Report from Study
  Country: US (occurrence: US)
  Receive Date: 20130321
  Receipt Date: 20130321
  Transmission Date: 20140127
  Serious: No
  Sender: FDA-Public Use
  Company Number: US-VERTEX PHARMACEUTICALS INC.-2013-003884

PATIENT
  Sex: Female

DRUGS (3)
  1. VX-950 (TELAPREVIR) [Suspect]
     Indication: HEPATITIS C
     Dosage: 750 MG, TID
  2. MULTIVITAMIN [Concomitant]
  3. CRANBERRY [Concomitant]

REACTIONS (3)
  - Fatigue [Unknown]
  - Rash papular [Unknown]
  - Pruritus [Unknown]
